FAERS Safety Report 5799306-3 (Version None)
Quarter: 2008Q3

REPORT INFORMATION
  Report Type: 
  Country: None (occurrence: None)
  Receive Date: 20080701
  Receipt Date: 20080616
  Transmission Date: 20090109
  Serious: Yes (Hospitalization)
  Sender: FDA-Public Use
  Company Number: 2008AL007395

PATIENT
  Age: 63 Year
  Sex: Female

DRUGS (4)
  1. DIGOXIN [Suspect]
     Indication: ARRHYTHMIA
     Dosage: 0.25MG DAILY PO
     Route: 048
     Dates: start: 19940801, end: 20080428
  2. LISINOPRIL [Concomitant]
  3. TOPROL-XL [Concomitant]
  4. FOLIC ACID [Concomitant]

REACTIONS (4)
  - BLOOD PRESSURE INCREASED [None]
  - DISORIENTATION [None]
  - DIZZINESS [None]
  - HYPERHIDROSIS [None]
